FAERS Safety Report 5514588-0 (Version None)
Quarter: 2007Q4

REPORT INFORMATION
  Report Type: 
  Country: None (occurrence: None)
  Receive Date: 20071113
  Receipt Date: 20071102
  Transmission Date: 20080405
  Serious: Yes (Hospitalization)
  Sender: FDA-Public Use
  Company Number: B0494931A

PATIENT
  Age: 73 Year
  Sex: Female
  Weight: 70 kg

DRUGS (12)
  1. AUGMENTIN '500' [Suspect]
     Indication: DRUG USE FOR UNKNOWN INDICATION
     Dosage: 1G THREE TIMES PER DAY
     Route: 042
     Dates: start: 20070930, end: 20071001
  2. PLAVIX [Suspect]
     Indication: DRUG USE FOR UNKNOWN INDICATION
     Route: 048
     Dates: start: 20070917, end: 20071003
  3. PROGRAF [Concomitant]
     Dosage: 1MG PER DAY
     Route: 065
  4. PRAVASTATIN [Concomitant]
     Dosage: 20MG PER DAY
     Route: 065
  5. ASPEGIC 1000 [Concomitant]
     Dosage: 10MG PER DAY
     Route: 065
  6. TENORMIN [Concomitant]
     Route: 065
  7. AMLOR [Concomitant]
     Route: 065
  8. ROVAMYCINE [Concomitant]
     Indication: SYSTEMIC ANTIBACTERIAL THERAPY
     Dosage: 1.5U6 THREE TIMES PER DAY
     Route: 065
     Dates: start: 20070929, end: 20071010
  9. TAZOBACTAM [Concomitant]
     Indication: SYSTEMIC ANTIBACTERIAL THERAPY
     Route: 065
     Dates: start: 20070929, end: 20070929
  10. CLAFORAN [Concomitant]
     Indication: SYSTEMIC ANTIBACTERIAL THERAPY
     Dosage: 1G THREE TIMES PER DAY
     Route: 065
     Dates: start: 20071002, end: 20071010
  11. AMIKACIN [Concomitant]
     Route: 065
     Dates: start: 20070929, end: 20070929
  12. MOPRAL [Concomitant]
     Indication: DRUG USE FOR UNKNOWN INDICATION

REACTIONS (8)
  - BLOOD CREATINE PHOSPHOKINASE INCREASED [None]
  - EOSINOPHILIA [None]
  - GAMMA-GLUTAMYLTRANSFERASE INCREASED [None]
  - LYMPHOPENIA [None]
  - PRURIGO [None]
  - RASH MACULO-PAPULAR [None]
  - TRANSAMINASES INCREASED [None]
  - VASCULAR PURPURA [None]
